FAERS Safety Report 14060718 (Version 2)
Quarter: 2017Q4

REPORT INFORMATION
  Report Type: Report from Study
  Country: US (occurrence: US)
  Receive Date: 20171007
  Receipt Date: 20171115
  Transmission Date: 20180321
  Serious: No
  Sender: FDA-Public Use
  Company Number: PHEH2017US032148

PATIENT
  Age: 67 Year
  Sex: Female

DRUGS (1)
  1. COSENTYX [Suspect]
     Active Substance: SECUKINUMAB
     Indication: PSORIASIS
     Dosage: 300 MG, QW
     Route: 030

REACTIONS (8)
  - Pollakiuria [Unknown]
  - Chromaturia [Unknown]
  - Incorrect route of drug administration [Unknown]
  - Sunburn [Unknown]
  - Urine analysis abnormal [Unknown]
  - Bone pain [Unknown]
  - Injection site bruising [Unknown]
  - Myalgia [Unknown]

NARRATIVE: CASE EVENT DATE: 20171030
